FAERS Safety Report 14190837 (Version 1)
Quarter: 2017Q4

REPORT INFORMATION
  Report Type: Report from Study
  Country: None (occurrence: US)
  Receive Date: 20171115
  Receipt Date: 20171115
  Transmission Date: 20180321
  Serious: Yes (Hospitalization, Other)
  Sender: FDA-Public Use
  Company Number: US-ABBVIE-17K-163-2082607-00

PATIENT
  Age: 54 Year
  Sex: Female

DRUGS (4)
  1. CYTOMEL [Suspect]
     Active Substance: LIOTHYRONINE SODIUM
     Indication: HYPOTHYROIDISM
     Route: 065
     Dates: start: 2015, end: 201708
  2. SYNTHROID [Suspect]
     Active Substance: LEVOTHYROXINE SODIUM
     Indication: HYPOTHYROIDISM
     Route: 048
     Dates: start: 2011
  3. SYNTHROID [Suspect]
     Active Substance: LEVOTHYROXINE SODIUM
     Route: 048
     Dates: start: 201708
  4. LEVETIRACETAM. [Suspect]
     Active Substance: LEVETIRACETAM
     Indication: SEIZURE
     Route: 065

REACTIONS (26)
  - Dyspnoea [Not Recovered/Not Resolved]
  - Muscle spasms [Not Recovered/Not Resolved]
  - Drug ineffective [Recovered/Resolved]
  - Cough [Not Recovered/Not Resolved]
  - Dysphagia [Not Recovered/Not Resolved]
  - Thyroid disorder [Unknown]
  - Pain [Not Recovered/Not Resolved]
  - Autoimmune thyroiditis [Not Recovered/Not Resolved]
  - Chronic fatigue syndrome [Unknown]
  - Adrenal disorder [Unknown]
  - Tremor [Not Recovered/Not Resolved]
  - Coma [Recovered/Resolved]
  - Coeliac disease [Unknown]
  - Adverse reaction [Unknown]
  - Haemorrhoids [Unknown]
  - Fibromyalgia [Unknown]
  - Malaise [Unknown]
  - Feeling abnormal [Unknown]
  - Thyroid disorder [Not Recovered/Not Resolved]
  - Wheezing [Not Recovered/Not Resolved]
  - Urinary tract infection [Unknown]
  - Dysphonia [Not Recovered/Not Resolved]
  - Drug intolerance [Unknown]
  - Hypothyroidism [Recovered/Resolved]
  - Seizure [Unknown]
  - General physical condition abnormal [Not Recovered/Not Resolved]

NARRATIVE: CASE EVENT DATE: 2014
